FAERS Safety Report 15052836 (Version 1)
Quarter: 2018Q2

REPORT INFORMATION
  Report Type: Spontaneous
  Country: CA (occurrence: CA)
  Receive Date: 20180622
  Receipt Date: 20180622
  Transmission Date: 20180711
  Serious: Yes (Life-Threatening, Hospitalization, Other)
  Sender: FDA-Public Use
  Company Number: CA-ASTRAZENECA-2018SE78111

PATIENT
  Age: 68 Year
  Sex: Male
  Weight: 99 kg

DRUGS (13)
  1. FUROSEMIDE. [Concomitant]
     Active Substance: FUROSEMIDE
  2. CARBAMAZEPINE. [Interacting]
     Active Substance: CARBAMAZEPINE
     Indication: SEIZURE
     Route: 065
  3. ASA [Concomitant]
     Active Substance: ASPIRIN
  4. ATORVASTATIN CALCIUM. [Concomitant]
     Active Substance: ATORVASTATIN CALCIUM
  5. DULOXETINE. [Concomitant]
     Active Substance: DULOXETINE
  6. GABAPENTIN. [Concomitant]
     Active Substance: GABAPENTIN
  7. PAROXETINE. [Concomitant]
     Active Substance: PAROXETINE
  8. RAMIPRIL. [Concomitant]
     Active Substance: RAMIPRIL
  9. TAMSULOSIN [Concomitant]
     Active Substance: TAMSULOSIN
  10. METOPROLOL. [Concomitant]
     Active Substance: METOPROLOL
  11. BRILINTA [Suspect]
     Active Substance: TICAGRELOR
     Indication: ACUTE CORONARY SYNDROME
     Route: 048
  12. DOXEPIN [Concomitant]
     Active Substance: DOXEPIN
  13. QUETIAPINE. [Concomitant]
     Active Substance: QUETIAPINE

REACTIONS (4)
  - Drug interaction [Recovered/Resolved]
  - Drug ineffective [Recovered/Resolved]
  - Myocardial infarction [Recovered/Resolved]
  - Vascular stent thrombosis [Recovered/Resolved]
